FAERS Safety Report 10141165 (Version 3)
Quarter: 2014Q2

REPORT INFORMATION
  Report Type: Spontaneous
  Country: US (occurrence: US)
  Receive Date: 20140429
  Receipt Date: 20140611
  Transmission Date: 20141212
  Serious: Yes (Other)
  Sender: FDA-Public Use
  Company Number: CHPA2014US005788

PATIENT
  Age: 70 Year
  Sex: Female

DRUGS (2)
  1. EXCEDRIN EXTRA STRENGTH [Suspect]
     Indication: HEADACHE
     Dosage: UNK, PRN
     Route: 048
     Dates: start: 1972
  2. EXCEDRIN EXTRA STRENGTH [Suspect]
     Indication: PAIN

REACTIONS (4)
  - Multiple sclerosis [Recovering/Resolving]
  - Dysphagia [Not Recovered/Not Resolved]
  - Multiple sclerosis relapse [Recovering/Resolving]
  - Activities of daily living impaired [Not Recovered/Not Resolved]
